FAERS Safety Report 10044182 (Version 1)
Quarter: 2014Q1

REPORT INFORMATION
  Report Type: Spontaneous
  Country: SE (occurrence: SE)
  Receive Date: 20140328
  Receipt Date: 20140328
  Transmission Date: 20141002
  Serious: Yes (Hospitalization)
  Sender: FDA-Public Use
  Company Number: SE-ELI_LILLY_AND_COMPANY-SE201403007097

PATIENT
  Sex: Male

DRUGS (3)
  1. ZYPADHERA [Suspect]
     Indication: PRODUCT USED FOR UNKNOWN INDICATION
     Dosage: 210 MG, UNK
     Route: 030
     Dates: start: 20140123
  2. ZYPADHERA [Suspect]
     Dosage: 300 MG, UNK
     Route: 030
     Dates: start: 20140206
  3. ZYPADHERA [Suspect]
     Dosage: 300 MG, UNK
     Route: 030
     Dates: start: 20140220

REACTIONS (2)
  - Injection site abscess [Recovered/Resolved]
  - Injection site haemorrhage [Recovered/Resolved]
